FAERS Safety Report 25284959 (Version 3)
Quarter: 2025Q2

REPORT INFORMATION
  Report Type: Spontaneous
  Country: US (occurrence: US)
  Receive Date: 20250508
  Receipt Date: 20250620
  Transmission Date: 20250716
  Serious: Yes (Hospitalization)
  Sender: BIOGEN
  Company Number: US-BIOGEN-2025BI01310135

PATIENT
  Age: 7 Year
  Sex: Male

DRUGS (38)
  1. SPINRAZA [Suspect]
     Active Substance: NUSINERSEN
     Indication: Spinal muscular atrophy
     Route: 050
  2. DTaP/Hep 13/IPV Vaccine [Concomitant]
     Indication: Product used for unknown indication
     Route: 050
     Dates: start: 20180222
  3. DTaP/HiB/IPV Vaccine [Concomitant]
     Indication: Product used for unknown indication
     Route: 050
     Dates: start: 20180323
  4. DTaP/HiB/IPV Vaccine [Concomitant]
     Dates: start: 20180530
  5. Dtap 5 Pertussis Antigen NOS [Concomitant]
     Indication: Product used for unknown indication
     Route: 050
     Dates: start: 20190503
  6. Dtap 5 Pertussis Antigen NOS [Concomitant]
     Dates: start: 20211117
  7. HEPATITIS A VACCINE NOS [Concomitant]
     Active Substance: HEPATITIS A VACCINE, INACTIVATED
     Indication: Product used for unknown indication
     Route: 050
     Dates: start: 20190607
  8. HEPATITIS A VACCINE NOS [Concomitant]
     Active Substance: HEPATITIS A VACCINE, INACTIVATED
     Dates: start: 20191213
  9. HiB PRP-OMP Conjugate Vaccine [Concomitant]
     Indication: Product used for unknown indication
     Route: 050
     Dates: start: 20180222
  10. HiB PRP-T Conjugate Vaccine [Concomitant]
     Indication: Product used for unknown indication
     Route: 050
     Dates: start: 20190503
  11. POLIOVIRUS VACCINE INACTIVATED NOS [Concomitant]
     Active Substance: POLIOVIRUS TYPE 1 ANTIGEN (FORMALDEHYDE INACTIVATED)\POLIOVIRUS TYPE 2 ANTIGEN (FORMALDEHYDE INACTIV
     Indication: Product used for unknown indication
     Route: 050
     Dates: start: 20211117
  12. INFLUENZA VIRUS VACCINE [Concomitant]
     Active Substance: INFLUENZA VIRUS VACCINE
     Indication: Product used for unknown indication
     Route: 050
     Dates: start: 20241031
  13. INFLUENZA VIRUS VACCINE [Concomitant]
     Active Substance: INFLUENZA VIRUS VACCINE
     Dates: start: 20211019
  14. INFLUENZA VIRUS VACCINE [Concomitant]
     Active Substance: INFLUENZA VIRUS VACCINE
     Dates: start: 20190411
  15. INFLUENZA VIRUS VACCINE [Concomitant]
     Active Substance: INFLUENZA VIRUS VACCINE
     Dates: start: 20201012
  16. INFLUENZA VIRUS VACCINE [Concomitant]
     Active Substance: INFLUENZA VIRUS VACCINE
     Dates: start: 20211019
  17. INFLUENZA VIRUS VACCINE [Concomitant]
     Active Substance: INFLUENZA VIRUS VACCINE
     Dates: start: 20231117
  18. INFLUENZA VIRUS VACCINE [Concomitant]
     Active Substance: INFLUENZA VIRUS VACCINE
     Dates: start: 20221006
  19. MEASLES-MUMPS-RUBELLA VIRUS VACCINE [Concomitant]
     Active Substance: MEASLES-MUMPS-RUBELLA VIRUS VACCINE
     Indication: Product used for unknown indication
     Route: 050
     Dates: start: 20190503
  20. MEASLES-MUMPS-RUBELLA VIRUS VACCINE [Concomitant]
     Active Substance: MEASLES-MUMPS-RUBELLA VIRUS VACCINE
     Route: 050
     Dates: start: 20211119
  21. PNEUMOCOCCAL VACCINE POLYVALENT [Concomitant]
     Active Substance: PNEUMOCOCCAL VACCINE POLYVALENT
     Indication: Product used for unknown indication
     Route: 050
     Dates: start: 20180222
  22. PNEUMOCOCCAL VACCINE POLYVALENT [Concomitant]
     Active Substance: PNEUMOCOCCAL VACCINE POLYVALENT
     Route: 050
     Dates: start: 20180323
  23. PNEUMOCOCCAL VACCINE POLYVALENT [Concomitant]
     Active Substance: PNEUMOCOCCAL VACCINE POLYVALENT
     Route: 050
     Dates: start: 20180530
  24. PNEUMOCOCCAL VACCINE POLYVALENT [Concomitant]
     Active Substance: PNEUMOCOCCAL VACCINE POLYVALENT
     Route: 050
     Dates: start: 20190502
  25. PNEUMOCOCCAL VACCINE POLYVALENT [Concomitant]
     Active Substance: PNEUMOCOCCAL VACCINE POLYVALENT
     Indication: Product used for unknown indication
     Route: 050
     Dates: start: 20200211
  26. RSV-Mab IM (Palivizumab) [Concomitant]
     Indication: Product used for unknown indication
     Route: 050
     Dates: start: 20200103, end: 20200207
  27. RSV-Mab IM (Palivizumab) [Concomitant]
     Route: 050
     Dates: start: 20200302
  28. Rotavirus Monovalent [Concomitant]
     Indication: Product used for unknown indication
     Route: 050
     Dates: start: 20180222, end: 20180323
  29. HEPATITIS B VIRUS VACCINE [Concomitant]
     Active Substance: HEPATITIS B VIRUS VACCINE
     Indication: Product used for unknown indication
     Route: 050
     Dates: start: 20171109
  30. HEPATITIS B VIRUS VACCINE [Concomitant]
     Active Substance: HEPATITIS B VIRUS VACCINE
     Dates: start: 20180902
  31. TYLENOL [Concomitant]
     Active Substance: ACETAMINOPHEN
     Indication: Product used for unknown indication
     Route: 050
     Dates: start: 20241108, end: 20250425
  32. PROVENTIL [Concomitant]
     Active Substance: ALBUTEROL
     Indication: Product used for unknown indication
     Route: 050
     Dates: start: 20240826
  33. PEPCID [Concomitant]
     Active Substance: FAMOTIDINE
     Indication: Product used for unknown indication
     Route: 050
     Dates: start: 20240826
  34. CUVPOSA [Concomitant]
     Active Substance: GLYCOPYRROLATE
     Indication: Product used for unknown indication
     Route: 050
     Dates: start: 20250306
  35. ATROVENT [Concomitant]
     Active Substance: IPRATROPIUM BROMIDE
     Indication: Product used for unknown indication
     Route: 050
     Dates: start: 20240826
  36. MIRALAX [Concomitant]
     Active Substance: POLYETHYLENE GLYCOL 3350
     Indication: Product used for unknown indication
     Route: 050
     Dates: start: 20240826
  37. TRANSDERM SCOP [Concomitant]
     Active Substance: SCOPOLAMINE
     Indication: Product used for unknown indication
     Route: 050
     Dates: start: 20250306
  38. TOBRAMYCIN [Concomitant]
     Active Substance: TOBRAMYCIN
     Indication: Product used for unknown indication
     Route: 050

REACTIONS (11)
  - Viral infection [Unknown]
  - Nasopharyngitis [Unknown]
  - Pseudomonas infection [Unknown]
  - Tracheitis [Unknown]
  - Pharyngeal disorder [Unknown]
  - Vocal cord paralysis [Unknown]
  - Laryngeal stenosis [Unknown]
  - Fibroma [Unknown]
  - Upper airway obstruction [Unknown]
  - Complication associated with device [Unknown]
  - Bronchitis bacterial [Unknown]

NARRATIVE: CASE EVENT DATE: 20250312
